FAERS Safety Report 7916113-3 (Version None)
Quarter: 2011Q4

REPORT INFORMATION
  Report Type: 
  Country: None (occurrence: None)
  Receive Date: 20111116
  Receipt Date: 20111108
  Transmission Date: 20120403
  Serious: Yes (Hospitalization)
  Sender: FDA-Public Use
  Company Number: US-BIOGENIDEC-2011BI011416

PATIENT
  Age: 42 Year
  Sex: Male

DRUGS (16)
  1. GABAPENTIN [Concomitant]
     Route: 048
  2. IBUPROFEN (ADVIL) [Concomitant]
     Indication: PAIN
  3. TYSABRI [Suspect]
     Indication: MULTIPLE SCLEROSIS
     Route: 042
     Dates: start: 20081008, end: 20110112
  4. VITAMIN D [Concomitant]
     Route: 048
  5. TIZANIDINE HYDROCHLORIDE [Concomitant]
     Indication: MUSCLE SPASMS
  6. FLUCONAZOLE [Concomitant]
  7. OXYGEN [Concomitant]
     Indication: SLEEP APNOEA SYNDROME
  8. NICODERM CQ [Concomitant]
     Indication: TOBACCO ABUSE
     Route: 023
  9. FAMOTIDINE [Concomitant]
  10. BACLOFEN [Concomitant]
     Indication: MUSCLE SPASMS
     Route: 048
  11. VENTOLIN [Concomitant]
     Indication: WHEEZING
     Route: 045
  12. TYLENOL EXTRA STRENGTH [Concomitant]
     Indication: PAIN
     Route: 048
  13. TRAMADOL HCL [Concomitant]
     Indication: PAIN
     Route: 048
  14. DIAZEPAM [Concomitant]
  15. TRAZODONE HCL [Concomitant]
     Indication: SLEEP DISORDER
     Route: 048
  16. VENTOLIN [Concomitant]
     Indication: RESPIRATORY TRACT CONGESTION
     Route: 045

REACTIONS (8)
  - PNEUMONIA [None]
  - PSYCHOTIC BEHAVIOUR [None]
  - SEPSIS [None]
  - CYSTITIS [None]
  - MULTIPLE SCLEROSIS RELAPSE [None]
  - MOOD SWINGS [None]
  - ASTHENIA [None]
  - PYELONEPHRITIS [None]
